FAERS Safety Report 7943802-7 (Version None)
Quarter: 2011Q4

REPORT INFORMATION
  Report Type: 
  Country: None (occurrence: None)
  Receive Date: 20111128
  Receipt Date: 20111118
  Transmission Date: 20120403
  Serious: Yes (Hospitalization)
  Sender: FDA-Public Use
  Company Number: DE-ROCHE-1014948

PATIENT
  Sex: Female
  Weight: 76 kg

DRUGS (2)
  1. MABTHERA [Suspect]
     Route: 042
     Dates: start: 20100630
  2. MABTHERA [Suspect]
     Indication: B-CELL LYMPHOMA
     Route: 042
     Dates: start: 20100511

REACTIONS (2)
  - GENERAL PHYSICAL HEALTH DETERIORATION [None]
  - ORAL CANDIDIASIS [None]
